FAERS Safety Report 8042410-X (Version None)
Quarter: 2012Q1

REPORT INFORMATION
  Report Type: 
  Country: None (occurrence: None)
  Receive Date: 20120112
  Receipt Date: 20120102
  Transmission Date: 20120608
  Serious: Yes (Hospitalization)
  Sender: FDA-Public Use
  Company Number: FR-NOVOPROD-342464

PATIENT

DRUGS (11)
  1. EFFEXOR [Suspect]
     Dosage: 75 MG, QD
     Route: 048
  2. LANSOPRAZOLE [Suspect]
     Dosage: 1
     Route: 048
  3. ACTRAPID [Suspect]
     Indication: TYPE 2 DIABETES MELLITUS
     Dosage: 10 U, QD
     Route: 058
  4. LEVOTHYROXINE SODIUM [Suspect]
     Dosage: 50 A?G, QD
     Route: 048
  5. VADILEX [Suspect]
     Dosage: 40 MG, QD
     Route: 048
  6. RAMIPRIL [Suspect]
     Dosage: 3.75 MG, QD
  7. FUROSEMIDE [Suspect]
     Dosage: 80 MG, UNK
     Route: 048
  8. INSULATARD NPH HUMAN [Suspect]
     Indication: TYPE 2 DIABETES MELLITUS
     Dosage: 40 U, QD
     Route: 058
  9. REPAGLINIDE [Suspect]
     Indication: TYPE 2 DIABETES MELLITUS
     Dosage: 6 MG, QD
     Route: 048
  10. AMIODARONE HCL [Suspect]
     Dosage: 0.5
     Route: 048
  11. PENTOXIFYLLINE [Suspect]
     Dosage: 15 MG, QD
     Route: 048

REACTIONS (1)
  - DERMATITIS EXFOLIATIVE [None]
